FAERS Safety Report 23098725 (Version 2)
Quarter: 2023Q4

REPORT INFORMATION
  Report Type: Spontaneous
  Country: JP (occurrence: JP)
  Receive Date: 20231024
  Receipt Date: 20231211
  Transmission Date: 20240110
  Serious: Yes (Other)
  Sender: FDA-Public Use
  Company Number: JP-MSD-M2023-44123

PATIENT
  Age: 44 Year
  Sex: Male

DRUGS (1)
  1. KEYTRUDA [Suspect]
     Active Substance: PEMBROLIZUMAB
     Indication: Hodgkin^s disease
     Dosage: 200 MILLIGRAM, Q3W
     Route: 041

REACTIONS (1)
  - Colitis ulcerative [Unknown]
